FAERS Safety Report 9026350 (Version 1)
Quarter: 2013Q1

REPORT INFORMATION
  Report Type: Spontaneous
  Country: US (occurrence: None)
  Receive Date: 20130107
  Receipt Date: 20130107
  Transmission Date: 20140127
  Serious: Yes (Disabling)
  Sender: FDA-Public Use
  Company Number: 2012/186

PATIENT
  Age: 54 Year
  Sex: Male
  Weight: 139.7 kg

DRUGS (1)
  1. AMLODIPINE (NO PREF. NAME) 5 MG [Suspect]
     Indication: HYPERTENSION
     Route: 048
     Dates: start: 20121204

REACTIONS (1)
  - Eczema [None]
